FAERS Safety Report 6326155-X (Version None)
Quarter: 2009Q3

REPORT INFORMATION
  Report Type: 
  Country: None (occurrence: None)
  Receive Date: 20090824
  Receipt Date: 20090812
  Transmission Date: 20100115
  Serious: Yes (Other)
  Sender: FDA-Public Use
  Company Number: FI-PFIZER INC-2009226733

PATIENT
  Age: 42 Year

DRUGS (4)
  1. VIAGRA [Suspect]
     Indication: ERECTILE DYSFUNCTION
     Dosage: 150 MG, WEEKLY
     Route: 048
     Dates: start: 20000101
  2. PRIMASPAN [Concomitant]
     Dosage: 100 MG, 1X/DAY
  3. DIOVAN [Concomitant]
     Dosage: 40 MG, 1X/DAY
  4. APURIN [Concomitant]
     Dosage: UNK

REACTIONS (5)
  - INCORRECT DOSE ADMINISTERED [None]
  - MACULAR OEDEMA [None]
  - RETINAL HAEMORRHAGE [None]
  - RETINAL VEIN OCCLUSION [None]
  - VISION BLURRED [None]
